FAERS Safety Report 23714083 (Version 1)
Quarter: 2024Q2

REPORT INFORMATION
  Report Type: Report from Study
  Country: US (occurrence: US)
  Receive Date: 20240405
  Receipt Date: 20240405
  Transmission Date: 20240716
  Serious: No
  Sender: FDA-Public Use
  Company Number: US-AstraZeneca-CH-00597530A

PATIENT

DRUGS (1)
  1. SOLIRIS [Suspect]
     Active Substance: ECULIZUMAB
     Indication: Atypical haemolytic uraemic syndrome
     Dosage: UNK
     Route: 041
     Dates: start: 202312

REACTIONS (3)
  - Fatigue [Recovering/Resolving]
  - Asthenia [Recovering/Resolving]
  - Visual impairment [Unknown]

NARRATIVE: CASE EVENT DATE: 20230101
